FAERS Safety Report 7284188-3 (Version None)
Quarter: 2011Q1

REPORT INFORMATION
  Report Type: 
  Country: None (occurrence: None)
  Receive Date: 20110209
  Receipt Date: 20110127
  Transmission Date: 20110831
  Serious: Yes (Other)
  Sender: FDA-Public Use
  Company Number: IR-JNJFOC-20110200659

PATIENT
  Age: 40 Year
  Sex: Female

DRUGS (1)
  1. TOPIRAMATE [Suspect]
     Indication: MIGRAINE
     Route: 065

REACTIONS (6)
  - UVEITIS [None]
  - ANGLE CLOSURE GLAUCOMA [None]
  - MYOPIA [None]
  - HYPOPYON [None]
  - CHOROIDAL EFFUSION [None]
  - IRIS ADHESIONS [None]
